FAERS Safety Report 10184252 (Version 1)
Quarter: 2014Q2

REPORT INFORMATION
  Report Type: Spontaneous
  Country: US (occurrence: US)
  Receive Date: 20140520
  Receipt Date: 20140520
  Transmission Date: 20141212
  Serious: No
  Sender: FDA-Public Use
  Company Number: US-ASTRAZENECA-2013SE62274

PATIENT
  Age: 63 Year
  Sex: Female
  Weight: 61.2 kg

DRUGS (2)
  1. RHINOCORT AQUA [Suspect]
     Indication: RHINITIS ALLERGIC
     Route: 045
     Dates: start: 20130805
  2. RHINOCORT AQUA [Suspect]
     Indication: UPPER-AIRWAY COUGH SYNDROME
     Route: 045
     Dates: start: 20130805

REACTIONS (5)
  - Eye irritation [Recovered/Resolved]
  - Laceration [Recovering/Resolving]
  - Dysphonia [Not Recovered/Not Resolved]
  - Accidental exposure to product [Unknown]
  - Throat irritation [Recovered/Resolved]
